FAERS Safety Report 6604290-6 (Version None)
Quarter: 2010Q1

REPORT INFORMATION
  Report Type: 
  Country: None (occurrence: None)
  Receive Date: 20100226
  Receipt Date: 20090807
  Transmission Date: 20100710
  Serious: No
  Sender: FDA-Public Use
  Company Number: A0801114A

PATIENT
  Age: 24 Year
  Sex: Male

DRUGS (1)
  1. LAMICTAL CD [Suspect]
     Indication: BIPOLAR DISORDER
     Dosage: 100MG PER DAY
     Route: 048
     Dates: start: 20090724, end: 20090807

REACTIONS (3)
  - DARK CIRCLES UNDER EYES [None]
  - ERYTHEMA [None]
  - PIGMENTATION DISORDER [None]
